FAERS Safety Report 5254260-8 (Version None)
Quarter: 2007Q1

REPORT INFORMATION
  Report Type: 
  Country: None (occurrence: None)
  Receive Date: 20070302
  Receipt Date: 20070228
  Transmission Date: 20070707
  Serious: Yes (Other)
  Sender: FDA-Public Use
  Company Number: CA-GLAXOSMITHKLINE-A0641400A

PATIENT

DRUGS (1)
  1. FLOLAN [Suspect]
     Indication: DRUG USE FOR UNKNOWN INDICATION
     Route: 042

REACTIONS (2)
  - CATHETER RELATED COMPLICATION [None]
  - PHARMACEUTICAL PRODUCT COMPLAINT [None]
